FAERS Safety Report 14109108 (Version 1)
Quarter: 2017Q4

REPORT INFORMATION
  Report Type: Spontaneous
  Country: US (occurrence: US)
  Receive Date: 20171019
  Receipt Date: 20171019
  Transmission Date: 20180321
  Serious: No
  Sender: FDA-Public Use
  Company Number: US-OTSUKA-2017_016060

PATIENT

DRUGS (1)
  1. REXULTI [Suspect]
     Active Substance: BREXPIPRAZOLE
     Indication: PRODUCT USED FOR UNKNOWN INDICATION
     Dosage: 0.5 MG, QD (4 DAYS)
     Route: 048
     Dates: start: 2017, end: 2017

REACTIONS (5)
  - Dizziness [Unknown]
  - Hot flush [Unknown]
  - Akathisia [Recovering/Resolving]
  - Muscle rigidity [Recovered/Resolved]
  - Movement disorder [Unknown]

NARRATIVE: CASE EVENT DATE: 2017
